FAERS Safety Report 8650025 (Version 5)
Quarter: 2013Q4

REPORT INFORMATION
  Report Type: Spontaneous
  Country: US (occurrence: US)
  Receive Date: 20120705
  Receipt Date: 20131017
  Transmission Date: 20140711
  Serious: Yes (Other)
  Sender: FDA-Public Use
  Company Number: US-PFIZER INC-2012099797

PATIENT
  Age: 46 Year
  Sex: Male

DRUGS (13)
  1. LYRICA [Suspect]
     Dosage: 100 MG, 5X/DAY
     Route: 048
  2. DILANTIN KAPSEAL [Suspect]
     Dosage: 100 MG, 3X/DAY
     Route: 048
  3. VISTARIL [Suspect]
     Dosage: 50 MG, QHS (AT BEDTIME)
     Route: 048
  4. LORTAB [Concomitant]
     Indication: PAIN
     Dosage: 10MG/500MG, 2X/DAY, PRN ( AS NEEDED)
     Route: 048
  5. CELEXA [Concomitant]
     Dosage: 40 MG, DAILY (1 TABLET BY MOUTH DAILY)
     Route: 048
  6. ZESTORETIC [Concomitant]
     Dosage: 10MG/12.5MG, TAKE 1 TABLET DAILY
     Route: 048
  7. AMBIEN [Concomitant]
     Indication: SLEEP DISORDER
     Dosage: 10 MG, TAKE 1 TABLET AS NEEDED, AT BEDTIME
     Route: 048
  8. SYNTHROID [Concomitant]
     Dosage: 0.2 MG, 1X/DAY (2 TABLETS)
     Route: 048
  9. AMITRIPTYLINE HYDROCHLORIDE [Concomitant]
     Dosage: 25 MG, TAKE 1 TABLET AT BEDTIME
     Route: 048
  10. TRAZODONE HYDROCHLORIDE [Concomitant]
     Dosage: 50 MG, TAKE 1 TABLET AT BEDTIME
     Route: 048
  11. CALCITRIOL [Concomitant]
     Dosage: 1 UG, 2X/DAY
     Route: 048
  12. CALTRATE + D [Concomitant]
     Dosage: 1200 MG, 3X/DAY
     Route: 048
  13. PRAVASTATIN [Concomitant]
     Dosage: 40 MG, TAKE 1 TABLET AT BEDTIME
     Route: 048

REACTIONS (8)
  - Convulsion [Unknown]
  - Hypothyroidism [Unknown]
  - Essential hypertension [Unknown]
  - Depression [Unknown]
  - Erectile dysfunction [Unknown]
  - Pain in extremity [Unknown]
  - Benign prostatic hyperplasia [Unknown]
  - Back pain [Unknown]
